FAERS Safety Report 9879387 (Version 1)
Quarter: 2014Q1

REPORT INFORMATION
  Report Type: Spontaneous
  Country: US (occurrence: US)
  Receive Date: 20140206
  Receipt Date: 20140206
  Transmission Date: 20141002
  Serious: Yes (Hospitalization)
  Sender: FDA-Public Use
  Company Number: US-B.I. PHARMACEUTICALS,INC./RIDGEFIELD-2014-BI-04163BP

PATIENT
  Sex: Female
  Weight: 117.93 kg

DRUGS (21)
  1. PRADAXA [Suspect]
     Indication: ATRIAL FIBRILLATION
     Dosage: 300 MG
     Route: 048
     Dates: start: 20110228, end: 20130529
  2. ACETAMINOPHEN [Concomitant]
     Route: 048
  3. ALLOPURINOL [Concomitant]
     Dosage: 300 MG
     Route: 048
  4. VITAMIN C [Concomitant]
     Dosage: 1000 MG
     Route: 048
  5. ECOTRIN [Concomitant]
     Dosage: 81 MG
     Route: 048
  6. SINEMET [Concomitant]
  7. COREG [Concomitant]
     Dosage: 50 MG
     Route: 048
  8. VITAMIN D3 [Concomitant]
     Dosage: 5000 U
     Route: 048
  9. CARDIZEM LA [Concomitant]
     Dosage: 240 MG
     Route: 048
  10. FEOSOL [Concomitant]
     Dosage: 650 MG
     Route: 048
  11. LASIX [Concomitant]
     Dosage: 40 MG
     Route: 048
  12. NORCO [Concomitant]
  13. LEVEMIR [Concomitant]
     Route: 058
  14. ZESTERIL [Concomitant]
     Dosage: 30 MG
     Route: 048
  15. GLUCOPHAGE [Concomitant]
     Dosage: 2000 MG
     Route: 048
  16. CENTRUM SILVER [Concomitant]
     Route: 048
  17. NIASPAN [Concomitant]
     Dosage: 1000 MG
     Route: 048
  18. FISH OIL [Concomitant]
     Dosage: 1000 MG
     Route: 048
  19. PRILOSEC [Concomitant]
     Dosage: 20 MG
  20. ACTOS [Concomitant]
     Dosage: 45 MG
     Route: 048
  21. CRESTOR [Concomitant]
     Dosage: 20 MG
     Route: 048

REACTIONS (2)
  - Gastrointestinal haemorrhage [Unknown]
  - Anaemia [Unknown]
